FAERS Safety Report 15290150 (Version 1)
Quarter: 2018Q3

REPORT INFORMATION
  Report Type: Report from Study
  Country: US (occurrence: US)
  Receive Date: 20180817
  Receipt Date: 20180817
  Transmission Date: 20181010
  Serious: Yes (Other)
  Sender: FDA-Public Use
  Company Number: US-JNJFOC-20180815461

PATIENT
  Sex: Female

DRUGS (7)
  1. SYNTHROID [Concomitant]
     Active Substance: LEVOTHYROXINE SODIUM
  2. METOPIRONE [Concomitant]
     Active Substance: METYRAPONE
  3. AMLODIPINE BESILATE W/BENAZEPRIL HYDROCHLORID [Concomitant]
     Active Substance: AMLODIPINE BESYLATE\BENAZEPRIL HYDROCHLORIDE
  4. OXYCODONE [Concomitant]
     Active Substance: OXYCODONE
  5. ISOSORB DINIT [Concomitant]
  6. IMBRUVICA [Suspect]
     Active Substance: IBRUTINIB
     Indication: WALDENSTROM^S MACROGLOBULINAEMIA
     Route: 048
     Dates: start: 20170921, end: 20180511
  7. IMBRUVICA [Suspect]
     Active Substance: IBRUTINIB
     Indication: WALDENSTROM^S MACROGLOBULINAEMIA
     Route: 048
     Dates: start: 20180512

REACTIONS (2)
  - Haemoglobin decreased [Recovering/Resolving]
  - Contusion [Unknown]
